FAERS Safety Report 9156883 (Version 1)
Quarter: 2013Q1

REPORT INFORMATION
  Report Type: Spontaneous
  Country: DE (occurrence: DE)
  Receive Date: 20130312
  Receipt Date: 20130312
  Transmission Date: 20140127
  Serious: Yes (Other)
  Sender: FDA-Public Use
  Company Number: PHHY2012DE118471

PATIENT
  Age: 41 Year
  Sex: Male

DRUGS (1)
  1. GLIVEC [Suspect]
     Indication: CHRONIC MYELOID LEUKAEMIA
     Dosage: 400 MG, DAILY
     Route: 048

REACTIONS (6)
  - Gastrointestinal disorder [Unknown]
  - Lymphoedema [Unknown]
  - Angioedema [Unknown]
  - Swelling face [Unknown]
  - Oedema peripheral [Unknown]
  - Thrombosis [Unknown]
